FAERS Safety Report 25902648 (Version 1)
Quarter: 2025Q4

REPORT INFORMATION
  Report Type: Spontaneous
  Country: US (occurrence: US)
  Receive Date: 20251009
  Receipt Date: 20251009
  Transmission Date: 20260117
  Serious: No
  Sender: CB FLEET
  Company Number: US-PRESTIGE-202506-US-001564

PATIENT
  Sex: Female

DRUGS (1)
  1. MICONAZOLE [Suspect]
     Active Substance: MICONAZOLE
     Indication: Urine abnormality
     Dosage: INSERTED ABOUT 1/2 DOSE ONCE

REACTIONS (4)
  - Hypersensitivity [Unknown]
  - Blister [Unknown]
  - Product use in unapproved indication [None]
  - Underdose [None]
